FAERS Safety Report 24652159 (Version 1)
Quarter: 2024Q4

REPORT INFORMATION
  Report Type: Spontaneous
  Country: US (occurrence: None)
  Receive Date: 20241121
  Receipt Date: 20241121
  Transmission Date: 20250115
  Serious: Yes (Hospitalization)
  Sender: Public
  Company Number: None

PATIENT
  Age: 66 Year
  Sex: Male
  Weight: 103.42 kg

DRUGS (8)
  1. MYLOTARG [Suspect]
     Active Substance: GEMTUZUMAB OZOGAMICIN
     Dosage: OTHER FREQUENCY : DAYS 1, 4, 7;?
     Route: 042
     Dates: start: 20241109, end: 20241114
  2. TAGRAXOFUSP [Suspect]
     Active Substance: TAGRAXOFUSP
     Indication: Acute myeloid leukaemia
     Dosage: OTHER FREQUENCY : DAYS 5,6,7;?
     Route: 042
  3. LEVAQUIN 600MG [Concomitant]
  4. BACTRIM SS [Concomitant]
  5. POSACONAZOLE 300MG [Concomitant]
  6. VALACYCLOVIR [Concomitant]
     Active Substance: VALACYCLOVIR HYDROCHLORIDE
  7. ALLOPURINOL 300MG [Concomitant]
  8. METFORMIN 1000MG [Concomitant]

REACTIONS (8)
  - Syncope [None]
  - Blood lactic acid [None]
  - Troponin I [None]
  - Hypotension [None]
  - Aspartate aminotransferase increased [None]
  - Alanine aminotransferase increased [None]
  - Diarrhoea [None]
  - Febrile neutropenia [None]

NARRATIVE: CASE EVENT DATE: 20241115
